FAERS Safety Report 8133939-4 (Version None)
Quarter: 2012Q1

REPORT INFORMATION
  Report Type: 
  Country: None (occurrence: None)
  Receive Date: 20120213
  Receipt Date: 20120203
  Transmission Date: 20120608
  Serious: Yes (Other)
  Sender: FDA-Public Use
  Company Number: US-ASTRAZENECA-2011SE72472

PATIENT
  Age: 62 Year
  Sex: Male
  Weight: 97.5 kg

DRUGS (3)
  1. PRILOSEC [Suspect]
     Indication: GASTROOESOPHAGEAL REFLUX DISEASE
     Route: 048
  2. NEXIUM [Suspect]
     Indication: GASTROOESOPHAGEAL REFLUX DISEASE
     Route: 048
  3. NEXIUM [Suspect]
     Route: 048

REACTIONS (24)
  - MOBILITY DECREASED [None]
  - GASTROOESOPHAGEAL REFLUX DISEASE [None]
  - DRUG TOLERANCE [None]
  - VOMITING [None]
  - DRUG INEFFECTIVE [None]
  - OESOPHAGEAL PERFORATION [None]
  - APHAGIA [None]
  - DRUG DOSE OMISSION [None]
  - OESOPHAGEAL CARCINOMA [None]
  - OFF LABEL USE [None]
  - HAEMATEMESIS [None]
  - OESOPHAGEAL DISORDER [None]
  - DYSPHAGIA [None]
  - ABDOMINAL DISTENSION [None]
  - HYPERCHLORHYDRIA [None]
  - DYSPEPSIA [None]
  - FLATULENCE [None]
  - EPIGASTRIC DISCOMFORT [None]
  - MALAISE [None]
  - PAIN [None]
  - SLEEP DISORDER DUE TO A GENERAL MEDICAL CONDITION [None]
  - PHARYNGEAL EROSION [None]
  - THROAT IRRITATION [None]
  - MEMORY IMPAIRMENT [None]
